FAERS Safety Report 24047438 (Version 2)
Quarter: 2024Q3

REPORT INFORMATION
  Report Type: Report from Study
  Country: ZA (occurrence: ZA)
  Receive Date: 20240703
  Receipt Date: 20240805
  Transmission Date: 20241016
  Serious: Yes (Hospitalization)
  Sender: ABBVIE
  Company Number: ZA-ABBOTT-2024A-1383495

PATIENT
  Age: 56 Year
  Sex: Female

DRUGS (15)
  1. CREON [Suspect]
     Active Substance: PANCRELIPASE AMYLASE\PANCRELIPASE LIPASE\PANCRELIPASE PROTEASE
     Indication: Pancreatic failure
     Dosage: 150 MG TAKE ONE CAPSULE THREE TIMES A DAY, CREON 10000 (150 MG OF  PANCREATIN)
     Route: 048
  2. PROPRANOLOL HYDROCHLORIDE [Concomitant]
     Active Substance: PROPRANOLOL HYDROCHLORIDE
     Indication: Hypertension
     Dosage: 10 MG TAKE ONE TABLET TWICE A DAY
     Route: 048
  3. AZITHROMYCIN [Concomitant]
     Active Substance: AZITHROMYCIN
     Indication: Product used for unknown indication
     Dosage: 500 MG TAKE ONE TABLET DAILY
     Route: 048
  4. SCOPEX CO [Concomitant]
     Indication: Product used for unknown indication
     Dosage: TAKE ONE TABLET THREE TIMES A DAY
     Route: 048
  5. MEDROL [Concomitant]
     Active Substance: METHYLPREDNISOLONE
     Indication: Product used for unknown indication
     Dosage: 4 MG TAKE TWO TABLETS TWICE A DAY
     Route: 048
  6. ADCO DOL [Concomitant]
     Indication: Product used for unknown indication
     Dosage: AS INDICATED
     Route: 048
  7. Cnt labs moringa [Concomitant]
     Indication: Product used for unknown indication
     Dosage: 400 MG TAKE ONE CAPSULE DAILY
     Route: 048
  8. CLOBAZAM [Concomitant]
     Active Substance: CLOBAZAM
     Indication: Anxiety
     Dosage: 10 MG TAKE ONE TABLET TWICE DAY, ?5 MG CLOBAZAM
     Route: 048
  9. Sinutab sinus [Concomitant]
     Indication: Product used for unknown indication
     Dosage: AS INDICATED
     Route: 048
  10. LOPERAMIDE [Concomitant]
     Active Substance: LOPERAMIDE
     Indication: Product used for unknown indication
     Dosage: 2 MG TAKE TWO TABLETS
     Route: 048
  11. ESTRADIOL [Concomitant]
     Active Substance: ESTRADIOL
     Indication: Hormone replacement therapy
     Dosage: 75 MCG APPLY TWICE WEEKLY, EVOREL 75 (4.8 MG ESTRADIOL)
     Route: 061
  12. Sinucon [Concomitant]
     Indication: Product used for unknown indication
     Dosage: TAKE ONE TABLET DAILY
     Route: 048
  13. ESOMEPRAZOLE [Concomitant]
     Active Substance: ESOMEPRAZOLE
     Indication: Ulcer
     Dosage: 40 MG TAKE ONE TABLET IN THE MORNING
     Route: 048
  14. SINUEND [Concomitant]
     Indication: Product used for unknown indication
     Dosage: 1-2 TABLET(S) THREE TIMES PER DAY
     Route: 048
  15. Serdep [Concomitant]
     Indication: Mental disorder
     Dosage: 50 MG TAKE ONE TABLET DAILY
     Route: 048

REACTIONS (3)
  - Blood pressure abnormal [Recovered/Resolved]
  - Product confusion [Unknown]
  - Hospitalisation [Unknown]

NARRATIVE: CASE EVENT DATE: 20240501
